FAERS Safety Report 13698412 (Version 2)
Quarter: 2018Q2

REPORT INFORMATION
  Report Type: Report from Study
  Country: CA (occurrence: CA)
  Receive Date: 20170628
  Receipt Date: 20180626
  Transmission Date: 20180711
  Serious: Yes (Other)
  Sender: FDA-Public Use
  Company Number: CA-BRISTOL-MYERS SQUIBB COMPANY-BMS-2017-054544

PATIENT
  Sex: Female

DRUGS (1)
  1. ABATACEPT [Suspect]
     Active Substance: ABATACEPT
     Indication: RHEUMATOID ARTHRITIS
     Dosage: 125 MG, QWK
     Route: 058
     Dates: start: 20160527

REACTIONS (14)
  - Inflammation [Unknown]
  - Localised oedema [Unknown]
  - Pyrexia [Recovered/Resolved]
  - Eye inflammation [Not Recovered/Not Resolved]
  - Pain in extremity [Unknown]
  - Eye pain [Not Recovered/Not Resolved]
  - Skin warm [Unknown]
  - Hypoaesthesia [Unknown]
  - Arthralgia [Unknown]
  - Pulmonary fibrosis [Unknown]
  - Headache [Not Recovered/Not Resolved]
  - Rheumatoid arthritis [Unknown]
  - Finger deformity [Unknown]
  - Dizziness [Recovered/Resolved]
